FAERS Safety Report 14220786 (Version 1)
Quarter: 2017Q4

REPORT INFORMATION
  Report Type: Spontaneous
  Country: US (occurrence: US)
  Receive Date: 20171124
  Receipt Date: 20171124
  Transmission Date: 20180321
  Serious: No
  Sender: FDA-Public Use
  Company Number: US-009507513-1711USA008010

PATIENT
  Age: 15 Year
  Sex: Male

DRUGS (4)
  1. SODIUM CHLORIDE. [Concomitant]
     Active Substance: SODIUM CHLORIDE
     Indication: PERIPHERAL NERVE OPERATION
     Dosage: 2 ML, ONCE
     Route: 053
  2. LIDOCAINE. [Concomitant]
     Active Substance: LIDOCAINE
     Indication: PERIPHERAL NERVE OPERATION
     Dosage: 2 ML, ONCE
     Route: 053
  3. CELESTONE SOLUSPAN [Suspect]
     Active Substance: BETAMETHASONE ACETATE\BETAMETHASONE SODIUM PHOSPHATE
     Indication: ANTIINFLAMMATORY THERAPY
     Dosage: 1 ML, ONCE
     Route: 053
  4. LIDOCAINE. [Concomitant]
     Active Substance: LIDOCAINE
     Dosage: 1 ML, ONCE

REACTIONS (1)
  - Product use in unapproved indication [Unknown]
